FAERS Safety Report 25056757 (Version 1)
Quarter: 2025Q1

REPORT INFORMATION
  Report Type: Spontaneous
  Country: NO (occurrence: NO)
  Receive Date: 20250310
  Receipt Date: 20250310
  Transmission Date: 20250408
  Serious: Yes (Disabling)
  Sender: MERCK SHARP & DOHME LLC
  Company Number: None

PATIENT
  Age: 77 Year
  Sex: Female

DRUGS (3)
  1. KEYTRUDA [Suspect]
     Active Substance: PEMBROLIZUMAB
     Indication: Lung neoplasm malignant
     Dosage: 200 MG, Q3W; STRENGTH: 25 MG/ML
     Route: 050
     Dates: start: 20230724, end: 20240205
  2. CARBOPLATIN [Suspect]
     Active Substance: CARBOPLATIN
     Indication: Lung neoplasm malignant
     Route: 050
     Dates: start: 20230724, end: 20241211
  3. VINORELBINE [Suspect]
     Active Substance: VINORELBINE TARTRATE
     Indication: Lung neoplasm malignant
     Dosage: 35 MG, EVERY 3 WEEKS
     Route: 050
     Dates: start: 20241009, end: 20241211

REACTIONS (1)
  - Neuropathy peripheral [Not Recovered/Not Resolved]
